FAERS Safety Report 14594678 (Version 6)
Quarter: 2018Q4

REPORT INFORMATION
  Report Type: Report from Study
  Country: US (occurrence: US)
  Receive Date: 20180302
  Receipt Date: 20181231
  Transmission Date: 20190204
  Serious: Yes (Death, Hospitalization, Other)
  Sender: FDA-Public Use
  Company Number: US-ACTELION-A-NJ2018-168353

PATIENT
  Age: 81 Year
  Sex: Female

DRUGS (1)
  1. OPSUMIT [Suspect]
     Active Substance: MACITENTAN
     Indication: PULMONARY ARTERIAL HYPERTENSION
     Dosage: 10 MG, QD
     Route: 048
     Dates: start: 20180119

REACTIONS (7)
  - Localised infection [Unknown]
  - Eye pain [Unknown]
  - Osteomyelitis [Unknown]
  - Fall [Unknown]
  - Femur fracture [Unknown]
  - Death [Fatal]
  - Eye infection [Unknown]
